FAERS Safety Report 5662822-9 (Version None)
Quarter: 2008Q1

REPORT INFORMATION
  Report Type: 
  Country: None (occurrence: None)
  Receive Date: 20080307
  Receipt Date: 20080229
  Transmission Date: 20080703
  Serious: Yes (Hospitalization)
  Sender: FDA-Public Use
  Company Number: DSU-2008-00310

PATIENT
  Sex: Male

DRUGS (5)
  1. BENICAR HCT [Suspect]
     Indication: DRUG USE FOR UNKNOWN INDICATION
     Dosage: 40/25 MG (20/12.5 MG TABLETS BID),PER ORAL
     Route: 048
  2. CADUET(10 MILLIGRAM) [Concomitant]
  3. CELLCEPT (MYCOPHENOLATE MOFETIL)(500 MILLIGRAM, TABLET)(MYCOPHENOLATE [Concomitant]
  4. LUNESTA (2 MILLIGRAM) [Concomitant]
  5. POTASSIUM CITRATE (POTASSIUM CITRATE) (1080 MILLIGRAM) (POTASSIUM CITR [Concomitant]

REACTIONS (4)
  - HEART RATE INCREASED [None]
  - HYPOTENSION [None]
  - LOSS OF CONSCIOUSNESS [None]
  - VOMITING [None]
